FAERS Safety Report 22228980 (Version 2)
Quarter: 2023Q2

REPORT INFORMATION
  Report Type: Report from Study
  Country: GB (occurrence: GB)
  Receive Date: 20230419
  Receipt Date: 20230424
  Transmission Date: 20230722
  Serious: Yes (Other)
  Sender: FDA-Public Use
  Company Number: GB-ROCHE-2176577

PATIENT
  Age: 50 Year
  Sex: Female

DRUGS (23)
  1. DOCETAXEL [Suspect]
     Active Substance: DOCETAXEL
     Indication: Breast cancer
     Dosage: 100 MILLIGRAM, Q3W (DOSE MODIFIED DUE TO AE FROM 130 TO 100PLANNED CYCLES COMPLETED)
     Route: 042
     Dates: start: 20151113, end: 20160104
  2. DOCETAXEL [Suspect]
     Active Substance: DOCETAXEL
     Dosage: 130 MILLIGRAM, Q3W
     Route: 042
     Dates: start: 20150904, end: 20151016
  3. TAMOXIFEN [Suspect]
     Active Substance: TAMOXIFEN
     Indication: Breast cancer
     Dosage: 20 MILLIGRAM, QD
     Route: 048
     Dates: start: 20160420
  4. TRASTUZUMAB [Suspect]
     Active Substance: TRASTUZUMAB
     Indication: Product used for unknown indication
     Dosage: 6 MILLIGRAM, Q3W (LOADING DOSE OF 8 MG/KG AND THEN 6 MG/KG REPEATED AT 3 WEEKLY INTERVALS)
     Route: 042
     Dates: start: 20150925, end: 20160916
  5. TRASTUZUMAB [Suspect]
     Active Substance: TRASTUZUMAB
     Dosage: 8 MILLIGRAM, Q3W (LOADING DOSE OF 8 MG/KG AND THEN 6 MG/KG REPEATED AT 3 WEEKLY INTERVALS)
     Route: 042
     Dates: start: 20150904, end: 20150904
  6. TRASTUZUMAB [Suspect]
     Active Substance: TRASTUZUMAB
     Dosage: 8 MILLIGRAM, Q3W (LOADING 8 MG/KG AND THEN MAINTANANCE DOSE 6 MG/KG IN 3 WEEKS)
     Route: 042
     Dates: start: 20161117, end: 20161117
  7. TRASTUZUMAB [Suspect]
     Active Substance: TRASTUZUMAB
     Dosage: 6 MILLIGRAM, Q3W (LOADING 8 MG/KG AND THEN 6 MG/KG IN 3 WEEKS) 08-DEC-2016 00:00
     Route: 042
  8. PERTUZUMAB [Suspect]
     Active Substance: PERTUZUMAB
     Indication: Breast cancer
     Dosage: 840 MILLIGRAM, Q3W (840 MG LOADING DOSE ONCE AND 420 MG IN 3 WEEKS) 08-DEC-2016 00:00
     Route: 042
  9. PERTUZUMAB [Suspect]
     Active Substance: PERTUZUMAB
     Dosage: 420 MILLIGRAM, Q3W (840 MG LOADING DOSE ONCE AND MAINTENANCE DOSE OF 420 MG IN 3 WEEKS)
     Route: 042
     Dates: start: 20150925, end: 20160916
  10. PERTUZUMAB [Suspect]
     Active Substance: PERTUZUMAB
     Dosage: 840 MILLIGRAM, Q3W (840 MG LOADING DOSE ONCE AND MAINTENANCE DOSE OF 420 MG IN 3 WEEKS)
     Route: 042
     Dates: start: 20150904, end: 20150904
  11. PERTUZUMAB [Suspect]
     Active Substance: PERTUZUMAB
     Dosage: 840 MILLIGRAM, Q3W (840 MG LOADING DOSE ONCE AND MAINTENANCE DOSE OF 420 MG IN 3 WEEKS)
     Route: 042
     Dates: start: 20161117, end: 20161117
  12. BUDESONIDE [Concomitant]
     Active Substance: BUDESONIDE
     Dosage: UNK
     Route: 065
  13. BUTYLSCOPOLAMINE BROMIDE [Concomitant]
     Active Substance: BUTYLSCOPOLAMINE BROMIDE
     Dosage: UNK
     Route: 065
  14. AMOXICILLIN\CLAVULANATE POTASSIUM [Concomitant]
     Active Substance: AMOXICILLIN\CLAVULANATE POTASSIUM
     Dosage: UNK
     Route: 065
     Dates: start: 20160408, end: 20160412
  15. IMODIUM [Concomitant]
     Active Substance: LOPERAMIDE HYDROCHLORIDE
     Dosage: UNK
     Route: 065
  16. INSTILLAGEL [Concomitant]
     Active Substance: CHLORHEXIDINE GLUCONATE\LIDOCAINE HYDROCHLORIDE
     Dosage: UNK
     Route: 065
     Dates: start: 20160426
  17. LANSOPRAZOLE [Concomitant]
     Active Substance: LANSOPRAZOLE
     Dosage: UNK
     Route: 065
  18. CHLORPHENIRAMINE MALEATE [Concomitant]
     Active Substance: CHLORPHENIRAMINE MALEATE
     Indication: Anal pruritus
     Dosage: UNK 18-JAN-2017 00:00
     Route: 065
  19. DIBUCAINE HYDROCHLORIDE\PREDNISOLONE [Concomitant]
     Active Substance: DIBUCAINE HYDROCHLORIDE\PREDNISOLONE
     Dosage: UNK
     Route: 065
  20. SENOKOT [Concomitant]
     Active Substance: SENNOSIDES
     Dosage: UNK
     Route: 065
  21. TERBUTALINE [Concomitant]
     Active Substance: TERBUTALINE
     Dosage: UNK
     Route: 065
  22. UNIROID [Concomitant]
     Dosage: UNK
     Route: 065
  23. ZOLEDRONIC ACID [Concomitant]
     Active Substance: ZOLEDRONIC ACID
     Indication: Metastases to bone
     Dosage: UNK
     Route: 065
     Dates: start: 20160129, end: 20170503

REACTIONS (1)
  - Pelvic infection [Recovered/Resolved]

NARRATIVE: CASE EVENT DATE: 20161201
